FAERS Safety Report 6510847-3 (Version None)
Quarter: 2009Q4

REPORT INFORMATION
  Report Type: 
  Country: None (occurrence: None)
  Receive Date: 20091222
  Receipt Date: 20090120
  Transmission Date: 20100525
  Serious: No
  Sender: FDA-Public Use
  Company Number: US-ASTRAZENECA-2009UW02035

PATIENT
  Age: 74 Year
  Sex: Female

DRUGS (3)
  1. CRESTOR [Suspect]
     Route: 048
     Dates: start: 20090118, end: 20090120
  2. METOPROLOL TARTRATE [Concomitant]
  3. PRILOSEC [Concomitant]

REACTIONS (4)
  - DRY MOUTH [None]
  - EYE SWELLING [None]
  - HEADACHE [None]
  - OEDEMA PERIPHERAL [None]
